FAERS Safety Report 21487134 (Version 5)
Quarter: 2022Q4

REPORT INFORMATION
  Report Type: Report from Study
  Country: IN (occurrence: IN)
  Receive Date: 20221020
  Receipt Date: 20221128
  Transmission Date: 20230113
  Serious: Yes (Hospitalization)
  Sender: FDA-Public Use
  Company Number: IN-JNJFOC-20221024727

PATIENT
  Age: 56 Year
  Sex: Female

DRUGS (11)
  1. AMIVANTAMAB [Suspect]
     Active Substance: AMIVANTAMAB
     Indication: Non-small cell lung cancer metastatic
     Dosage: ALSO REPORTED AS 250 ML
     Route: 042
     Dates: start: 20211028, end: 20220922
  2. PEMETREXED [Concomitant]
     Active Substance: PEMETREXED
     Indication: Non-small cell lung cancer metastatic
     Dosage: DOSE ALSO REPORTED AS 100 ML
     Route: 042
     Dates: start: 20211028, end: 20220922
  3. CARBOPLATIN [Concomitant]
     Active Substance: CARBOPLATIN
     Indication: Non-small cell lung cancer metastatic
     Route: 042
     Dates: start: 20211028, end: 20211230
  4. LACTIC ACID;PROPYLENE GLYCOL;UREA [Concomitant]
     Indication: Eczema
     Dosage: DOSE 100 (UNITS NOT SPECIFIED)
     Route: 061
     Dates: start: 20211029
  5. CLOBETASOL PROPIONATE;SALICYLIC ACID [Concomitant]
     Indication: Eczema
     Dosage: DOSE 20 (UNITS NOT SPECIFIED)
     Route: 061
     Dates: start: 20211029
  6. CLOBETASOL PROPIONATE;SALICYLIC ACID [Concomitant]
     Indication: Acne
     Dosage: DOSE 3 (UNITS NOT SPECIFIED)
     Route: 061
     Dates: start: 20211213
  7. PANTOPRAZOLE [Concomitant]
     Active Substance: PANTOPRAZOLE
     Indication: Prophylaxis
     Route: 048
     Dates: start: 20211030
  8. FOLIC ACID [Concomitant]
     Active Substance: FOLIC ACID
     Indication: Prophylaxis
     Route: 048
     Dates: start: 20211030
  9. VITAMIN B12 [Concomitant]
     Active Substance: CYANOCOBALAMIN
     Indication: Prophylaxis
     Route: 048
     Dates: start: 20211030
  10. CARBOXYMETHYLCELLULOSE SODIUM [Concomitant]
     Active Substance: CARBOXYMETHYLCELLULOSE SODIUM
     Indication: Vision blurred
     Route: 047
     Dates: start: 20211110
  11. CARBOXYMETHYLCELLULOSE SODIUM [Concomitant]
     Active Substance: CARBOXYMETHYLCELLULOSE SODIUM
     Indication: Cataract

REACTIONS (1)
  - Rash [Recovering/Resolving]

NARRATIVE: CASE EVENT DATE: 20221013
